FAERS Safety Report 24141624 (Version 1)
Quarter: 2024Q3

REPORT INFORMATION
  Report Type: Spontaneous
  Country: US (occurrence: US)
  Receive Date: 20240726
  Receipt Date: 20240726
  Transmission Date: 20241016
  Serious: No
  Sender: GLAXOSMITHKLINE
  Company Number: US-GSK-US2024092249

PATIENT
  Sex: Male

DRUGS (4)
  1. TRELEGY ELLIPTA [Suspect]
     Active Substance: FLUTICASONE FUROATE\UMECLIDINIUM BROMIDE\VILANTEROL TRIFENATATE
     Indication: Chronic obstructive pulmonary disease
     Dosage: 1 PUFF(S), QD, 100/62.5/25MCG
     Route: 055
     Dates: start: 202402, end: 20240618
  2. OXYGEN [Concomitant]
     Active Substance: OXYGEN
     Indication: Chronic obstructive pulmonary disease
     Dosage: UNK
  3. ALBUTEROL [Concomitant]
     Active Substance: ALBUTEROL
     Indication: Chronic obstructive pulmonary disease
     Dosage: UNK, DOSAGE FOR NEBULIZER TREATMENTS
  4. ADVAIR HFA [Concomitant]
     Active Substance: FLUTICASONE PROPIONATE\SALMETEROL XINAFOATE
     Indication: Chronic obstructive pulmonary disease
     Dosage: UNK, GENERIC 250/50 DISKUS

REACTIONS (2)
  - Dyspnoea [Unknown]
  - Drug effect less than expected [Unknown]
